FAERS Safety Report 7249197-9 (Version None)
Quarter: 2011Q1

REPORT INFORMATION
  Report Type: 
  Country: None (occurrence: None)
  Receive Date: 20110128
  Receipt Date: 20101116
  Transmission Date: 20110831
  Serious: Yes (Other)
  Sender: FDA-Public Use
  Company Number: US-BAYER-201027475NA

PATIENT
  Sex: Female
  Weight: 73 kg

DRUGS (11)
  1. NEXIUM [Concomitant]
     Indication: GASTROOESOPHAGEAL REFLUX DISEASE
     Dates: start: 20070101
  2. OVCON-35 [Concomitant]
     Dosage: OFF AND ON OVER THE YEARS (NOS)
  3. YASMIN [Suspect]
     Indication: PRODUCT USED FOR UNKNOWN INDICATION
     Dosage: NOTES FROM 12-NOV-2007 INDICATED THAT YASMIN WAS DISCONTINUED ON AN UNSPECIFIED DATE
     Route: 048
     Dates: start: 20050101, end: 20080615
  4. NAPROSYN [Concomitant]
  5. MOTRIN [Concomitant]
     Indication: MYALGIA
     Dates: start: 19890101
  6. ZYRTEC [Concomitant]
     Dosage: FOR SINUS (NOS)
     Dates: start: 20070101
  7. DIOVAN [Concomitant]
  8. EXCEDRIN (MIGRAINE) [Concomitant]
     Indication: MIGRAINE
     Dates: start: 19890101
  9. WELLBUTRIN [Concomitant]
     Indication: DEPRESSION
     Dates: start: 20070101
  10. ADVIL [Concomitant]
     Indication: HEADACHE
     Dates: start: 19890101
  11. WELLBUTRIN [Concomitant]
     Indication: ANXIETY

REACTIONS (1)
  - CHOLECYSTECTOMY [None]
